FAERS Safety Report 6895090-0 (Version None)
Quarter: 2010Q3

REPORT INFORMATION
  Report Type: 
  Country: None (occurrence: None)
  Receive Date: 20100802
  Receipt Date: 20100721
  Transmission Date: 20110219
  Serious: Yes (Hospitalization, Other)
  Sender: FDA-Public Use
  Company Number: US-SANOFI-AVENTIS-2010SA037903

PATIENT
  Age: 65 Year
  Sex: Male

DRUGS (5)
  1. LANTUS [Suspect]
     Indication: TYPE 2 DIABETES MELLITUS
     Dosage: DOSE:50 UNIT(S)
     Route: 058
     Dates: start: 20090101
  2. SOLOSTAR [Suspect]
     Indication: DIABETES MELLITUS
     Dates: start: 20090101
  3. APIDRA [Suspect]
     Indication: TYPE 2 DIABETES MELLITUS
     Dosage: SLIDING SCALE WITH MEALS
     Route: 058
  4. APIDRA [Suspect]
     Dosage: DOSE VARIES
     Route: 058
     Dates: start: 20090101
  5. SOLOSTAR [Suspect]
     Indication: TYPE 2 DIABETES MELLITUS
     Dosage: VARIES -APIDRA
     Dates: start: 20090101

REACTIONS (9)
  - ABDOMINAL PAIN [None]
  - BLOOD GLUCOSE INCREASED [None]
  - FAECES DISCOLOURED [None]
  - GASTRIC DISORDER [None]
  - INCISION SITE INFECTION [None]
  - PAIN [None]
  - PANCREATIC CYST [None]
  - PERFORATED ULCER [None]
  - ROAD TRAFFIC ACCIDENT [None]
